FAERS Safety Report 16497585 (Version 2)
Quarter: 2019Q3

REPORT INFORMATION
  Report Type: Spontaneous
  Country: JP (occurrence: JP)
  Receive Date: 20190628
  Receipt Date: 20190705
  Transmission Date: 20191004
  Serious: Yes (Hospitalization)
  Sender: FDA-Public Use
  Company Number: JP-JNJFOC-20190631044

PATIENT
  Age: 5 Decade
  Sex: Female

DRUGS (7)
  1. EFFEXOR XR [Suspect]
     Active Substance: VENLAFAXINE HYDROCHLORIDE
     Indication: PRODUCT USED FOR UNKNOWN INDICATION
     Route: 048
  2. LAMOTRIGINE. [Suspect]
     Active Substance: LAMOTRIGINE
     Indication: PRODUCT USED FOR UNKNOWN INDICATION
     Route: 048
  3. TETRAMIDE [Suspect]
     Active Substance: MIANSERIN
     Indication: ANXIETY
     Dosage: P.R.N
     Route: 048
  4. TRAVELMIN                          /00517301/ [Suspect]
     Active Substance: DIPHENHYDRAMINE SALICYLATE\DYPHYLLINE
     Indication: DIZZINESS
     Dosage: P.R.N
     Route: 048
  5. QUETIAPINE. [Suspect]
     Active Substance: QUETIAPINE
     Indication: PRODUCT USED FOR UNKNOWN INDICATION
     Route: 048
  6. LEVOTOMIN                          /00038602/ [Suspect]
     Active Substance: LEVOMEPROMAZINE
     Indication: PRODUCT USED FOR UNKNOWN INDICATION
     Route: 048
  7. CONCERTA [Suspect]
     Active Substance: METHYLPHENIDATE HYDROCHLORIDE
     Indication: ATTENTION DEFICIT/HYPERACTIVITY DISORDER
     Route: 048

REACTIONS (5)
  - Dizziness [Unknown]
  - Nausea [Unknown]
  - Tension [Unknown]
  - Anxiety [Unknown]
  - Agitation [Unknown]

NARRATIVE: CASE EVENT DATE: 20190617
